FAERS Safety Report 8340897-6 (Version None)
Quarter: 2012Q2

REPORT INFORMATION
  Report Type: 
  Country: None (occurrence: None)
  Receive Date: 20120507
  Receipt Date: 20120502
  Transmission Date: 20120825
  Serious: Yes (Life-Threatening, Hospitalization, Disabling, Other)
  Sender: FDA-Public Use
  Company Number: PHFR2012GB001731

PATIENT
  Sex: Male

DRUGS (10)
  1. AMISULPRIDE [Concomitant]
     Dosage: 100 UKN, BID
     Route: 048
  2. ACETAMINOPHEN AND CODEINE PHOSPHATE [Concomitant]
     Dosage: 1 DF, QD
     Route: 048
  3. FLUTICASONE PROPIONATE [Concomitant]
     Dosage: 2 PUFFS
  4. CLOZARIL [Suspect]
     Indication: SCHIZOPHRENIA, PARANOID TYPE
     Dosage: UNK UKN, UNK
     Route: 048
     Dates: start: 19930419
  5. ALBUTEROL [Concomitant]
     Indication: CHRONIC OBSTRUCTIVE PULMONARY DISEASE
     Dosage: 100 UG, PRN
  6. CLOZARIL [Suspect]
     Dosage: 500 MG, DAILY
     Route: 048
  7. CLOZARIL [Suspect]
     Dosage: 1 DF, OF 200 MG
     Route: 048
     Dates: start: 20120312
  8. CLOPIDOGREL [Concomitant]
     Dosage: 75 MG, ONCE IN MORNING
     Route: 048
  9. DICLOFENAC [Concomitant]
     Dosage: 50 MG, TID
     Route: 048
  10. TRAMADOL HYDROCHLORIDE [Concomitant]
     Dosage: 1 DF, PRN
     Route: 048

REACTIONS (14)
  - RENAL FAILURE ACUTE [None]
  - HYPOTENSION [None]
  - RHABDOMYOLYSIS [None]
  - TACHYCARDIA [None]
  - CARDIAC ARREST [None]
  - PLATELET COUNT DECREASED [None]
  - COMA SCALE ABNORMAL [None]
  - CIRCULATORY COLLAPSE [None]
  - SEPSIS [None]
  - HYPOTHERMIA [None]
  - RESPIRATORY FAILURE [None]
  - ISCHAEMIC NEPHROPATHY [None]
  - VASCULAR OCCLUSION [None]
  - ATRIAL FIBRILLATION [None]
